FAERS Safety Report 6544078-8 (Version None)
Quarter: 2010Q1

REPORT INFORMATION
  Report Type: 
  Country: None (occurrence: None)
  Receive Date: 20100120
  Receipt Date: 20100108
  Transmission Date: 20100710
  Serious: Yes (Other)
  Sender: FDA-Public Use
  Company Number: DE-MYLANLABS-2009S1021501

PATIENT
  Age: 58 Year
  Sex: Male
  Weight: 60 kg

DRUGS (3)
  1. METHOTREXATE [Suspect]
     Indication: MUSCULOSKELETAL PAIN
     Dates: start: 20080729, end: 20080812
  2. DECORTIN [Concomitant]
  3. OMEPRAZOLE [Concomitant]

REACTIONS (1)
  - VENOUS OCCLUSION [None]
